FAERS Safety Report 4498807-8 (Version None)
Quarter: 2004Q4

REPORT INFORMATION
  Report Type: 
  Country: None (occurrence: None)
  Receive Date: 20041108
  Receipt Date: 20041027
  Transmission Date: 20050328
  Serious: Yes (Death, Hospitalization)
  Sender: FDA-Public Use
  Company Number: 2004-BP-10746BR

PATIENT
  Age: 58 Year
  Sex: Male

DRUGS (3)
  1. MOVATEC TABLETS (MELOXICAM) (TA) (MELOXICAM) [Suspect]
     Indication: PNEUMONIA
     Dosage: 15 MG, PO
     Route: 048
  2. MOVATEC TABLETS (MELOXICAM) (TA) (MELOXICAM) [Suspect]
     Indication: UPPER RESPIRATORY TRACT INFECTION
     Dosage: 15 MG, PO
     Route: 048
  3. AMOXICILINA (AMOXICILLIN) [Concomitant]

REACTIONS (2)
  - MEDICATION ERROR [None]
  - UPPER GASTROINTESTINAL HAEMORRHAGE [None]
